FAERS Safety Report 22175320 (Version 4)
Quarter: 2024Q3

REPORT INFORMATION
  Report Type: Report from Study
  Country: US (occurrence: US)
  Receive Date: 20230405
  Receipt Date: 20240911
  Transmission Date: 20241017
  Serious: Yes (Hospitalization, Other)
  Sender: GLAXOSMITHKLINE
  Company Number: US-GSKCCFUS-Case-01663699_AE-93903

PATIENT

DRUGS (9)
  1. MEPOLIZUMAB [Suspect]
     Active Substance: MEPOLIZUMAB
     Indication: Asthma
     Dosage: 100 MG, Q4W
     Route: 058
     Dates: start: 20230306
  2. MEPOLIZUMAB [Suspect]
     Active Substance: MEPOLIZUMAB
     Indication: Asthma
     Dosage: 100 MG, Q4W
     Route: 058
     Dates: start: 202211
  3. TRELEGY ELLIPTA [Suspect]
     Active Substance: FLUTICASONE FUROATE\UMECLIDINIUM BROMIDE\VILANTEROL TRIFENATATE
     Indication: Asthma
     Dosage: UNK, QD
     Route: 055
     Dates: end: 2024
  4. ADVAIR HFA [Suspect]
     Active Substance: FLUTICASONE PROPIONATE\SALMETEROL XINAFOATE
     Indication: Asthma
     Dosage: UNK, QD
     Route: 055
  5. BREO ELLIPTA [Suspect]
     Active Substance: FLUTICASONE FUROATE\VILANTEROL TRIFENATATE
     Indication: Asthma
     Dosage: UNK
     Route: 055
     Dates: start: 202403
  6. PREDNISONE [Concomitant]
     Active Substance: PREDNISONE
     Indication: Product used for unknown indication
     Dosage: UNK
  7. OZEMPIC [Concomitant]
     Active Substance: SEMAGLUTIDE
     Indication: Obesity
     Dosage: UNK
  8. PAXLOVID [Concomitant]
     Active Substance: NIRMATRELVIR\RITONAVIR
     Indication: Product used for unknown indication
     Dosage: UNK
  9. ACTEMRA [Concomitant]
     Active Substance: TOCILIZUMAB
     Indication: Product used for unknown indication
     Dosage: 162 MG, WE

REACTIONS (18)
  - Renal failure [Recovered/Resolved]
  - Bronchitis [Unknown]
  - Swelling [Unknown]
  - Pneumonia [Unknown]
  - Optic neuropathy [Not Recovered/Not Resolved]
  - Diabetes mellitus [Recovered/Resolved]
  - Injection site pain [Recovered/Resolved]
  - Somnolence [Not Recovered/Not Resolved]
  - Ageusia [Unknown]
  - Rhinorrhoea [Unknown]
  - Coronavirus infection [Recovered/Resolved]
  - Fatigue [Unknown]
  - Weight decreased [Recovered/Resolved]
  - Giant cell arteritis [Not Recovered/Not Resolved]
  - Pain [Recovering/Resolving]
  - Inappropriate schedule of product administration [Recovered/Resolved]
  - Product dose omission in error [Recovered/Resolved]
  - Product use in unapproved indication [Unknown]

NARRATIVE: CASE EVENT DATE: 20230306
